FAERS Safety Report 6242153-9 (Version None)
Quarter: 2009Q2

REPORT INFORMATION
  Report Type: 
  Country: None (occurrence: None)
  Receive Date: 20090624
  Receipt Date: 20070521
  Transmission Date: 20091009
  Serious: Yes (Other)
  Sender: FDA-Public Use
  Company Number: US-ASTRAZENECA-2006UW26311

PATIENT
  Age: 31 Year
  Sex: Male
  Weight: 108 kg

DRUGS (5)
  1. SEROQUEL [Suspect]
     Indication: DEPRESSION
     Dosage: 100-600 MG
     Route: 048
     Dates: start: 20050110
  2. SEROQUEL [Suspect]
     Indication: SLEEP DISORDER
     Dosage: 100-600 MG
     Route: 048
     Dates: start: 20050110
  3. SEROQUEL [Suspect]
     Dosage: 300MG-600MG
     Route: 048
  4. SEROQUEL [Suspect]
     Dosage: 300MG-600MG
     Route: 048
  5. ZOLOFT [Concomitant]
     Dates: start: 20060110

REACTIONS (2)
  - DIABETES MELLITUS [None]
  - DIABETIC NEUROPATHY [None]
